FAERS Safety Report 7156565-2 (Version None)
Quarter: 2010Q4

REPORT INFORMATION
  Report Type: 
  Country: None (occurrence: None)
  Receive Date: 20101214
  Receipt Date: 20091109
  Transmission Date: 20110411
  Serious: No
  Sender: FDA-Public Use
  Company Number: US-ASTRAZENECA-2009SE25598

PATIENT
  Age: 54 Year
  Sex: Male
  Weight: 81.6 kg

DRUGS (1)
  1. CRESTOR [Suspect]
     Indication: BLOOD CHOLESTEROL INCREASED
     Route: 048
     Dates: start: 20091027, end: 20091106

REACTIONS (3)
  - JOINT STIFFNESS [None]
  - MOOD ALTERED [None]
  - MUSCULAR WEAKNESS [None]
